FAERS Safety Report 24409641 (Version 1)
Quarter: 2024Q4

REPORT INFORMATION
  Report Type: Spontaneous
  Country: US (occurrence: US)
  Receive Date: 20241008
  Receipt Date: 20241008
  Transmission Date: 20250115
  Serious: No
  Sender: SANOFI AVENTIS
  Company Number: US-SA-2024SA278542

PATIENT
  Age: 76 Year
  Sex: Male
  Weight: 86.36 kg

DRUGS (12)
  1. DUPIXENT [Suspect]
     Active Substance: DUPILUMAB
     Indication: Type 2 diabetes mellitus
     Dosage: 300 MG QOW
     Route: 058
  2. DUPIXENT [Suspect]
     Active Substance: DUPILUMAB
     Indication: Nasal congestion
  3. DUPIXENT [Suspect]
     Active Substance: DUPILUMAB
     Indication: Stress urinary incontinence
  4. DUPIXENT [Suspect]
     Active Substance: DUPILUMAB
     Indication: Back pain
  5. DUPIXENT [Suspect]
     Active Substance: DUPILUMAB
     Indication: Psoriasis
  6. DUPIXENT [Suspect]
     Active Substance: DUPILUMAB
     Indication: Dermatitis atopic
  7. DUPIXENT [Suspect]
     Active Substance: DUPILUMAB
     Indication: Dermatitis allergic
  8. DUPIXENT [Suspect]
     Active Substance: DUPILUMAB
     Indication: Lipoprotein metabolism disorder
  9. CALCIPOTRIENE AND BETAMETHASONE DIPROPIONATE [Concomitant]
     Active Substance: BETAMETHASONE DIPROPIONATE\CALCIPOTRIENE
  10. TRIAMCINOLONE ACETONIDE [Concomitant]
     Active Substance: TRIAMCINOLONE ACETONIDE
  11. ALKA-SELTZER GOLD [Concomitant]
     Active Substance: ANHYDROUS CITRIC ACID\POTASSIUM BICARBONATE\SODIUM BICARBONATE
  12. BAYER ASPIRIN [Concomitant]
     Active Substance: ASPIRIN

REACTIONS (3)
  - Dry skin [Unknown]
  - Pruritus [Unknown]
  - Product use in unapproved indication [Unknown]

NARRATIVE: CASE EVENT DATE: 20240801
